FAERS Safety Report 7085625-X (Version None)
Quarter: 2010Q4

REPORT INFORMATION
  Report Type: 
  Country: None (occurrence: None)
  Receive Date: 20101001
  Receipt Date: 20100630
  Transmission Date: 20110411
  Serious: No
  Sender: FDA-Public Use
  Company Number: 1000014841

PATIENT
  Age: 76 Year
  Sex: Female

DRUGS (15)
  1. BYSTOLIC [Suspect]
     Indication: HYPERTENSION
     Dosage: 5 MG (5 MG, 1 IN 1 D), ORAL
     Route: 048
     Dates: start: 20080101
  2. ATACAND [Suspect]
     Indication: HYPERTENSION
     Dates: start: 20080101, end: 20090101
  3. ASPIRIN (81 MILLIGRAM, TABLETS) [Concomitant]
  4. CALCIUM [Concomitant]
  5. POTASSIUM CHLORIDE [Concomitant]
  6. DULOXETINE (30 MILLIGRAM) [Concomitant]
  7. EZETIMIBE (10 MILLIGRAM, TABLETS) [Concomitant]
  8. HYDROCHLOROTHIAZIDE (25 MILLIGRAM, TABLETS) [Concomitant]
  9. LEVOXYL [Concomitant]
  10. VITAMIN B-12 [Concomitant]
  11. PANTOPRAZOLE (40 MILLIGRAM, TABLETS) [Concomitant]
  12. ACTONEL [Concomitant]
  13. AMITRIPTYLINE [Concomitant]
  14. ZOLPIDEM [Concomitant]
  15. ALPRAZOLAM (0.25 MILLIGRAM, TABLETS) [Concomitant]

REACTIONS (1)
  - COUGH [None]
